FAERS Safety Report 5149729-0 (Version None)
Quarter: 2006Q4

REPORT INFORMATION
  Report Type: 
  Country: None (occurrence: None)
  Receive Date: 20061113
  Receipt Date: 20060403
  Transmission Date: 20070319
  Serious: Yes (Life-Threatening, Hospitalization)
  Sender: FDA-Public Use
  Company Number: 2006SE01932

PATIENT
  Age: 27194 Day
  Sex: Female

DRUGS (9)
  1. BLOPRESS TABLETS 2 [Suspect]
     Indication: HYPERTENSION
     Route: 048
     Dates: start: 20050824, end: 20060328
  2. ATELEC [Concomitant]
     Indication: HYPERTENSION
     Route: 048
     Dates: start: 20000901, end: 20060328
  3. UBRETID [Concomitant]
     Indication: NEUROGENIC BLADDER
     Route: 048
     Dates: start: 20030317, end: 20060301
  4. UBRETID [Concomitant]
     Route: 048
     Dates: start: 20060302, end: 20060328
  5. MAAREDGE(DRIED ALUMINUM HYDROXIDE GEL/MAGNESIUM HYDROXIDE) [Concomitant]
     Indication: PROPHYLAXIS AGAINST GASTROINTESTINAL ULCER
     Route: 048
     Dates: start: 20060217, end: 20060328
  6. LOXONIN [Concomitant]
     Indication: BACK PAIN
     Route: 048
     Dates: start: 20060302, end: 20060328
  7. ZESTROMIN [Concomitant]
     Indication: INSOMNIA
     Route: 048
     Dates: start: 20051228, end: 20060327
  8. MOBIC [Concomitant]
     Indication: BACK PAIN
     Route: 048
     Dates: start: 20040319, end: 20051110
  9. GASMOTIN [Concomitant]
     Indication: PROPHYLAXIS AGAINST GASTROINTESTINAL ULCER
     Route: 048
     Dates: start: 20040319, end: 20051110

REACTIONS (7)
  - ASTHENIA [None]
  - BRADYARRHYTHMIA [None]
  - HYPERKALAEMIA [None]
  - MITRAL VALVE INCOMPETENCE [None]
  - SINUS ARREST [None]
  - TRICUSPID VALVE INCOMPETENCE [None]
  - VENTRICULAR HYPERTROPHY [None]
